FAERS Safety Report 8763695 (Version 1)
Quarter: 2012Q4

REPORT INFORMATION
  Report Type: Report from Study
  Country: JP (occurrence: JP)
  Receive Date: 20120828
  Receipt Date: 20120828
  Transmission Date: 20130627
  Serious: Yes (Other)
  Sender: FDA-Public Use
  Company Number: JP-VERTEX PHARMACEUTICAL INC.-AE-2012-010163

PATIENT
  Age: 70 Year
  Sex: Female

DRUGS (11)
  1. VX-950 [Suspect]
     Indication: HEPATITIS C
     Dosage: 1500 mg, qd
     Route: 048
     Dates: start: 20120515, end: 20120806
  2. RIBAVIRIN [Suspect]
     Indication: HEPATITIS C
     Dosage: 400 mg, qd
     Route: 048
     Dates: start: 20120515, end: 20120702
  3. RIBAVIRIN [Suspect]
     Dosage: 300 mg, qd
     Route: 048
     Dates: start: 20120703, end: 20120709
  4. RIBAVIRIN [Suspect]
     Dosage: 200 mg, qd
     Route: 048
     Dates: start: 20120710, end: 20120806
  5. PEGINTERFERON ALFA-2B [Suspect]
     Indication: HEPATITIS C
     Dosage: 1.5 UNK, UNK
     Route: 058
     Dates: start: 20120515, end: 20120731
  6. AMLODIN [Concomitant]
     Dosage: 10 mg, qd
     Route: 048
  7. GASTER [Concomitant]
     Dosage: 20 mg, qd
     Route: 048
  8. DIOVAN [Concomitant]
     Route: 048
  9. FLUITRAN [Concomitant]
     Dosage: 2 mg, qd
     Route: 048
     Dates: end: 20120529
  10. XYZAL [Concomitant]
     Dosage: 5 mg, UNK
     Route: 048
     Dates: start: 20120515, end: 20120806
  11. L-CARTIN [Concomitant]
     Dosage: 900 mg, qd
     Route: 048
     Dates: start: 20120515, end: 20120806

REACTIONS (3)
  - Renal disorder [Recovered/Resolved]
  - Blood urea increased [Recovered/Resolved]
  - Anaemia [Unknown]
